FAERS Safety Report 4376192-X (Version None)
Quarter: 2004Q2

REPORT INFORMATION
  Report Type: 
  Country: None (occurrence: None)
  Receive Date: 20040607
  Receipt Date: 20040525
  Transmission Date: 20050107
  Serious: Yes (Other)
  Sender: FDA-Public Use
  Company Number: 2004034908

PATIENT
  Age: 39 Year
  Sex: Male

DRUGS (2)
  1. LITHIUM (LITHIUM) [Suspect]
     Indication: ILL-DEFINED DISORDER
  2. AMITRIPTYLINE HCL [Concomitant]

REACTIONS (14)
  - ACUTE MYELOMONOCYTIC LEUKAEMIA [None]
  - ASTHENIA [None]
  - BASEDOW'S DISEASE [None]
  - BLOOD PRESSURE INCREASED [None]
  - BLOOD THYROID STIMULATING HORMONE DECREASED [None]
  - BONE MARROW TRANSPLANT [None]
  - GOITRE [None]
  - GRAFT VERSUS HOST DISEASE [None]
  - HEART RATE INCREASED [None]
  - HYPERHIDROSIS [None]
  - HYPERTHYROIDISM [None]
  - THYROXINE FREE INCREASED [None]
  - TREMOR [None]
  - WEIGHT DECREASED [None]
